FAERS Safety Report 5968586-3 (Version None)
Quarter: 2008Q4

REPORT INFORMATION
  Report Type: 
  Country: None (occurrence: None)
  Receive Date: 20081126
  Receipt Date: 20081121
  Transmission Date: 20090506
  Serious: Yes (Disabling)
  Sender: FDA-Public Use
  Company Number: US-MERCK-0805USA02823

PATIENT
  Age: 46 Year
  Sex: Female

DRUGS (7)
  1. FOSAMAX [Suspect]
     Indication: OSTEOPOROSIS
     Route: 048
     Dates: start: 20050501, end: 20061101
  2. LEVAQUIN [Concomitant]
     Route: 065
     Dates: start: 20030101
  3. CLEOCIN [Concomitant]
     Route: 065
     Dates: start: 20030101
  4. ALBUTEROL [Concomitant]
     Route: 065
     Dates: start: 20030101
  5. CIPRO [Concomitant]
     Route: 065
     Dates: start: 20040101
  6. AMOXICILLIN [Concomitant]
     Route: 065
     Dates: start: 20050101
  7. TETRACYCLINE [Concomitant]
     Route: 065
     Dates: start: 20050101

REACTIONS (8)
  - ANAEMIA [None]
  - BONE DENSITY DECREASED [None]
  - GINGIVAL BLEEDING [None]
  - INFECTION [None]
  - OSTEOARTHRITIS [None]
  - OSTEONECROSIS [None]
  - TOOTH DISORDER [None]
  - TOOTH LOSS [None]
